FAERS Safety Report 16867113 (Version 2)
Quarter: 2019Q4

REPORT INFORMATION
  Report Type: Spontaneous
  Country: US (occurrence: US)
  Receive Date: 20190930
  Receipt Date: 20191104
  Transmission Date: 20200122
  Serious: Yes (Disabling)
  Sender: FDA-Public Use
  Company Number: US-EYEPOINT PHARMACEUTICALS, INC.-US-EYP-19-00122

PATIENT
  Age: 70 Year
  Sex: Female

DRUGS (1)
  1. DEXYCU [Suspect]
     Active Substance: DEXAMETHASONE
     Indication: POST PROCEDURAL INFLAMMATION
     Route: 031
     Dates: start: 20190805, end: 20190805

REACTIONS (3)
  - Iris transillumination defect [Not Recovered/Not Resolved]
  - Device dislocation [Recovered/Resolved]
  - Laser therapy [Recovered/Resolved]

NARRATIVE: CASE EVENT DATE: 20190805
